FAERS Safety Report 5897802-1 (Version None)
Quarter: 2008Q3

REPORT INFORMATION
  Report Type: 
  Country: None (occurrence: None)
  Receive Date: 20080924
  Receipt Date: 20080924
  Transmission Date: 20090109
  Serious: Yes (Life-Threatening, Hospitalization)
  Sender: FDA-Public Use
  Company Number: None

PATIENT
  Age: 89 Year
  Sex: Female
  Weight: 79.3795 kg

DRUGS (4)
  1. SEROQUEL [Suspect]
     Indication: AGGRESSION
     Dosage: 75MG BID PO
     Route: 048
     Dates: start: 20080716, end: 20080722
  2. SEROQUEL [Suspect]
     Indication: DEMENTIA
     Dosage: 75MG BID PO
     Route: 048
     Dates: start: 20080716, end: 20080722
  3. SEROQUEL [Suspect]
     Indication: AGGRESSION
     Dosage: 75MG BID PO
     Route: 048
     Dates: start: 20080831, end: 20080911
  4. SEROQUEL [Suspect]
     Indication: DEMENTIA
     Dosage: 75MG BID PO
     Route: 048
     Dates: start: 20080831, end: 20080911

REACTIONS (5)
  - FALL [None]
  - HEAD INJURY [None]
  - PNEUMONIA [None]
  - PNEUMONIA ASPIRATION [None]
  - RENAL FAILURE ACUTE [None]
